FAERS Safety Report 13960234 (Version 1)
Quarter: 2017Q3

REPORT INFORMATION
  Report Type: Spontaneous
  Country: IT (occurrence: IT)
  Receive Date: 20170912
  Receipt Date: 20170912
  Transmission Date: 20171128
  Serious: Yes (Hospitalization)
  Sender: FDA-Public Use
  Company Number: IT-ROCHE-1992047

PATIENT
  Sex: Female

DRUGS (3)
  1. PANTOPRAZOLE SODIUM. [Concomitant]
     Active Substance: PANTOPRAZOLE SODIUM
     Route: 042
  2. ZYLORIC [Concomitant]
     Active Substance: ALLOPURINOL
     Dosage: 300 MG TABLETS^ 30 SCORED TABLETS
     Route: 048
  3. GAZYVARO [Suspect]
     Active Substance: OBINUTUZUMAB
     Indication: CHRONIC LYMPHOCYTIC LEUKAEMIA
     Dosage: 1000 MG VIAL - 1000 MG/40 ML - 1 VIAL
     Route: 041
     Dates: start: 20160624, end: 20160624

REACTIONS (1)
  - Urticaria [Recovered/Resolved]
